FAERS Safety Report 13098276 (Version 1)
Quarter: 2017Q1

REPORT INFORMATION
  Report Type: Other
  Country: GB (occurrence: GB)
  Receive Date: 20170109
  Receipt Date: 20170109
  Transmission Date: 20170428
  Serious: Yes (Other)
  Sender: FDA-Public Use
  Company Number: GB-PERRIGO-16GB023159

PATIENT

DRUGS (2)
  1. SULFASALAZINE. [Concomitant]
     Active Substance: SULFASALAZINE
     Indication: PRODUCT USED FOR UNKNOWN INDICATION
     Dosage: UNK
     Route: 065
  2. CETIRIZINE HYDROCHLORIDE. [Suspect]
     Active Substance: CETIRIZINE HYDROCHLORIDE
     Indication: SKIN DISORDER
     Dosage: 10 MG, QD
     Route: 048
     Dates: start: 20161212, end: 20161213

REACTIONS (8)
  - Sneezing [Unknown]
  - Pruritus [Recovered/Resolved]
  - Skin warm [Unknown]
  - Influenza like illness [Unknown]
  - Erythema [Unknown]
  - Malaise [Unknown]
  - Nasopharyngitis [Unknown]
  - Eye swelling [Unknown]

NARRATIVE: CASE EVENT DATE: 20161212
